FAERS Safety Report 24606380 (Version 2)
Quarter: 2024Q4

REPORT INFORMATION
  Report Type: Spontaneous
  Country: PH (occurrence: PH)
  Receive Date: 20241112
  Receipt Date: 20241115
  Transmission Date: 20250115
  Serious: Yes (Death, Other)
  Sender: ROCHE
  Company Number: PH-ROCHE-10000129118

PATIENT
  Sex: Female

DRUGS (1)
  1. OCREVUS [Suspect]
     Active Substance: OCRELIZUMAB
     Indication: Product used for unknown indication
     Route: 065
     Dates: start: 20241108

REACTIONS (2)
  - Brain stem haemorrhage [Unknown]
  - Brain herniation [Fatal]

NARRATIVE: CASE EVENT DATE: 20241110
